FAERS Safety Report 5423134-1 (Version None)
Quarter: 2007Q3

REPORT INFORMATION
  Report Type: 
  Country: None (occurrence: None)
  Receive Date: 20070821
  Receipt Date: 20070806
  Transmission Date: 20080115
  Serious: No
  Sender: FDA-Public Use
  Company Number: PHBS2007JP11793

PATIENT
  Age: 71 Year
  Sex: Male
  Weight: 63.0046 kg

DRUGS (2)
  1. VISUDYNE [Suspect]
     Indication: POLYPOIDAL CHOROIDAL VASCULOPATHY
     Dosage: 5.1 ML DAILY IV
     Route: 042
     Dates: start: 20060407, end: 20060407
  2. TRIAMCINOLONE ACETONIDE [Suspect]
     Indication: POLYPOIDAL CHOROIDAL VASCULOPATHY
     Dates: start: 20060426, end: 20060426

REACTIONS (5)
  - DISEASE PROGRESSION [None]
  - RETINAL DETACHMENT [None]
  - RETINAL HAEMORRHAGE [None]
  - RETINAL OEDEMA [None]
  - VISUAL ACUITY REDUCED [None]
